FAERS Safety Report 24550873 (Version 1)
Quarter: 2024Q4

REPORT INFORMATION
  Report Type: Spontaneous
  Country: US (occurrence: US)
  Receive Date: 20241025
  Receipt Date: 20241025
  Transmission Date: 20250115
  Serious: No
  Sender: PERRIGO
  Company Number: US-PERRIGO-23US011828

PATIENT
  Age: 81 Year
  Sex: Female
  Weight: 81.633 kg

DRUGS (1)
  1. FAMOTIDINE [Suspect]
     Active Substance: FAMOTIDINE
     Indication: Dyspepsia
     Dosage: 20 MG, SINGLE
     Route: 048
     Dates: start: 20230925, end: 20230925

REACTIONS (1)
  - Drug ineffective [Unknown]

NARRATIVE: CASE EVENT DATE: 20230925
